FAERS Safety Report 22339529 (Version 4)
Quarter: 2023Q2

REPORT INFORMATION
  Report Type: Report from Study
  Country: MX (occurrence: MX)
  Receive Date: 20230518
  Receipt Date: 20230628
  Transmission Date: 20230722
  Serious: Yes (Hospitalization, Other)
  Sender: FDA-Public Use
  Company Number: MX-TAKEDA-2023TUS046632

PATIENT
  Age: 27 Year
  Sex: Male
  Weight: 77 kg

DRUGS (3)
  1. PONATINIB [Suspect]
     Active Substance: PONATINIB
     Indication: Chronic myeloid leukaemia
     Dosage: 45 MILLIGRAM
     Route: 048
     Dates: start: 20180201
  2. PONATINIB [Suspect]
     Active Substance: PONATINIB
     Dosage: 45 MILLIGRAM
     Route: 048
     Dates: start: 20230317, end: 20230514
  3. PONATINIB [Suspect]
     Active Substance: PONATINIB
     Dosage: 45 MILLIGRAM, QD
     Route: 048
     Dates: start: 20230613

REACTIONS (10)
  - Epistaxis [Recovered/Resolved]
  - Hepatic failure [Recovering/Resolving]
  - Thrombocytopenia [Recovering/Resolving]
  - Hepatitis viral [Unknown]
  - Hepatitis A [Unknown]
  - Discouragement [Recovered/Resolved]
  - Gastric disorder [Recovering/Resolving]
  - Depression [Recovered/Resolved]
  - Jaundice [Recovered/Resolved]
  - Transaminases increased [Recovering/Resolving]

NARRATIVE: CASE EVENT DATE: 20230501
